FAERS Safety Report 17920384 (Version 1)
Quarter: 2020Q2

REPORT INFORMATION
  Report Type: Spontaneous
  Country: CA (occurrence: CA)
  Receive Date: 20200620
  Receipt Date: 20200620
  Transmission Date: 20200714
  Serious: Yes (Other)
  Sender: FDA-Public Use
  Company Number: CA-TEVA-2020-CA-1789789

PATIENT
  Sex: Female

DRUGS (1)
  1. ETHINYLESTRADIOL /LEVONORGESTREL [Suspect]
     Active Substance: ETHINYL ESTRADIOL\LEVONORGESTREL
     Indication: CONTRACEPTION
     Route: 065

REACTIONS (3)
  - Drug ineffective [Recovered/Resolved]
  - Metrorrhagia [Recovered/Resolved]
  - Unintended pregnancy [Recovered/Resolved]
